FAERS Safety Report 7366683-1 (Version None)
Quarter: 2011Q1

REPORT INFORMATION
  Report Type: 
  Country: None (occurrence: None)
  Receive Date: 20110225
  Receipt Date: 20110119
  Transmission Date: 20110831
  Serious: No
  Sender: FDA-Public Use
  Company Number: 321887

PATIENT
  Age: 80 Year
  Sex: Female

DRUGS (1)
  1. VICTOZA [Suspect]
     Indication: TYPE 2 DIABETES MELLITUS
     Dosage: 0.6 MG, QD, SUBCUTANEOUS
     Route: 058

REACTIONS (5)
  - HAIR TEXTURE ABNORMAL [None]
  - DRY THROAT [None]
  - DRY MOUTH [None]
  - DRY EYE [None]
  - DRY SKIN [None]
